FAERS Safety Report 20804812 (Version 2)
Quarter: 2022Q2

REPORT INFORMATION
  Report Type: Spontaneous
  Country: DE (occurrence: DE)
  Receive Date: 20220509
  Receipt Date: 20220526
  Transmission Date: 20220720
  Serious: Yes (Other)
  Sender: FDA-Public Use
  Company Number: DE-AMGEN-DEUSP2022075208

PATIENT
  Sex: Male
  Weight: 65 kg

DRUGS (1)
  1. PROLIA [Suspect]
     Active Substance: DENOSUMAB
     Indication: Osteoporosis
     Dosage: UNK
     Route: 065

REACTIONS (5)
  - Crohn^s disease [Recovered/Resolved]
  - Impaired gastric emptying [Recovered/Resolved]
  - Muscle twitching [Unknown]
  - Tremor [Unknown]
  - Abdominal pain upper [Unknown]
